FAERS Safety Report 23059678 (Version 2)
Quarter: 2025Q2

REPORT INFORMATION
  Report Type: Report from Study
  Country: CA (occurrence: CA)
  Receive Date: 20231012
  Receipt Date: 20250602
  Transmission Date: 20250716
  Serious: Yes (Other)
  Sender: CSL BEHRING
  Company Number: CA-BEH-2023163955

PATIENT
  Age: 75 Year
  Sex: Female
  Weight: 69 kg

DRUGS (16)
  1. HIZENTRA [Suspect]
     Active Substance: HUMAN IMMUNOGLOBULIN G
     Indication: Secondary immunodeficiency
     Dosage: 7 GRAM, QW
     Route: 065
     Dates: start: 20230928
  2. HIZENTRA [Suspect]
     Active Substance: HUMAN IMMUNOGLOBULIN G
     Dosage: 7 GRAM, QW
     Route: 058
     Dates: start: 20230928
  3. TACROLIMUS [Concomitant]
     Active Substance: TACROLIMUS
  4. PREDNISONE [Concomitant]
     Active Substance: PREDNISONE
  5. CELLCEPT [Concomitant]
     Active Substance: MYCOPHENOLATE MOFETIL
  6. VITAMIN D NOS [Concomitant]
     Active Substance: CHOLECALCIFEROL\ERGOCALCIFEROL
  7. FLUVOXAMINE [Concomitant]
     Active Substance: FLUVOXAMINE
  8. CITALOPRAM [Concomitant]
     Active Substance: CITALOPRAM
  9. SPIRONOLACTONE [Concomitant]
     Active Substance: SPIRONOLACTONE
  10. METOPROLOL [Concomitant]
     Active Substance: METOPROLOL
  11. ONEALFA [Concomitant]
     Active Substance: ALFACALCIDOL
  12. PROCALCIUM [Concomitant]
  13. CLONAZEPAM [Concomitant]
     Active Substance: CLONAZEPAM
  14. PANTOPRAZOLE [Concomitant]
     Active Substance: PANTOPRAZOLE
  15. SYNTHROID [Concomitant]
     Active Substance: LEVOTHYROXINE SODIUM
  16. COUMADIN [Concomitant]
     Active Substance: WARFARIN SODIUM

REACTIONS (2)
  - Heart valve incompetence [Unknown]
  - Infusion site haemorrhage [Unknown]
